FAERS Safety Report 8024594-2 (Version None)
Quarter: 2012Q1

REPORT INFORMATION
  Report Type: 
  Country: None (occurrence: None)
  Receive Date: 20120103
  Receipt Date: 20111216
  Transmission Date: 20120608
  Serious: Yes (Hospitalization, Disabling)
  Sender: FDA-Public Use
  Company Number: 1000009122

PATIENT
  Age: 50 Year
  Sex: Female
  Weight: 70 kg

DRUGS (4)
  1. ESCITALOPRAM OXALATE [Suspect]
     Indication: DEPRESSION
     Dosage: 10 MG (10 MG, 1 IN 1 D), ORAL
     Route: 048
     Dates: start: 20090119, end: 20090123
  2. CITALOPRAM (CITALOPRAM HYDROBROMIDE) (CITALOPRAM HYDROBROMIDE) [Concomitant]
  3. RELPAX [Concomitant]
  4. DERINOX (NASAL DROPS (INCLUDING NASAL SPRAY) [Concomitant]

REACTIONS (6)
  - CEREBRAL HAEMATOMA [None]
  - AORTIC ARTERIOSCLEROSIS [None]
  - HEMIPLEGIA [None]
  - CEREBRAL ARTERY STENOSIS [None]
  - AORTIC VALVE INCOMPETENCE [None]
  - ANGIOPATHY [None]
